FAERS Safety Report 4733089-0 (Version None)
Quarter: 2005Q3

REPORT INFORMATION
  Report Type: 
  Country: None (occurrence: None)
  Receive Date: 20050725
  Receipt Date: 20040720
  Transmission Date: 20060218
  Serious: Yes (Death, Other)
  Sender: FDA-Public Use
  Company Number: USA-2004-0016149

PATIENT
  Age: 33 Year
  Sex: Male
  Weight: 85.3 kg

DRUGS (13)
  1. MORPHINE SULFATE [Suspect]
  2. OXYCODONE HCL [Suspect]
  3. HYDROCODONE (HYDROCODONE) [Suspect]
  4. HEROIN (DIAMORPHINE) [Suspect]
  5. DIAZEPAM [Suspect]
  6. FENTANYL [Suspect]
  7. MEPERIDINE HCL [Suspect]
  8. COCAINE (COCAINE) [Suspect]
  9. OPIOIDS [Suspect]
  10. CANNABIS (CANNABIS) [Suspect]
  11. TEMAZEPAM [Suspect]
  12. CODEINE SUL TAB [Suspect]
  13. ACETAMINOPHEN [Suspect]

REACTIONS (3)
  - ACCIDENTAL OVERDOSE [None]
  - LOSS OF CONSCIOUSNESS [None]
  - MULTIPLE DRUG OVERDOSE ACCIDENTAL [None]
